FAERS Safety Report 8966000 (Version 2)
Quarter: 2013Q1

REPORT INFORMATION
  Report Type: Spontaneous
  Country: US (occurrence: US)
  Receive Date: 20121217
  Receipt Date: 20130215
  Transmission Date: 20140127
  Serious: Yes (Other)
  Sender: FDA-Public Use
  Company Number: US-AMGEN-USASP2012080440

PATIENT
  Age: 53 Year
  Sex: Female
  Weight: 50.34 kg

DRUGS (6)
  1. ENBREL [Suspect]
     Indication: RHEUMATOID ARTHRITIS
     Dosage: 25 MG, 2 TIMES/WK
     Dates: start: 20070701
  2. COLCRYS [Concomitant]
     Dosage: 0.6 MG, UNK
  3. ULTRAM                             /00599202/ [Concomitant]
     Dosage: 50 MG, UNK
     Route: 048
  4. DOXYCYCLINE [Concomitant]
     Dosage: 50 MG, UNK
     Route: 048
  5. VITAMIN D /00107901/ [Concomitant]
     Dosage: 2000 IU, QD
     Route: 048
  6. RESTASIS [Concomitant]
     Dosage: UNK
     Route: 047

REACTIONS (10)
  - Hypersensitivity [Recovered/Resolved]
  - Pruritus [Recovered/Resolved]
  - Oral pruritus [Recovered/Resolved]
  - Eye pruritus [Recovered/Resolved]
  - Flushing [Recovered/Resolved]
  - Skin reaction [Unknown]
  - Injection site reaction [Recovered/Resolved]
  - Injection site erythema [Recovered/Resolved]
  - Injection site pruritus [Recovered/Resolved]
  - Injection site warmth [Recovered/Resolved]
